FAERS Safety Report 10176898 (Version 1)
Quarter: 2014Q2

REPORT INFORMATION
  Report Type: Spontaneous
  Country: US (occurrence: US)
  Receive Date: 20140516
  Receipt Date: 20140516
  Transmission Date: 20141212
  Serious: Yes (Other)
  Sender: FDA-Public Use
  Company Number: US-IPSEN BIOPHARMACEUTICALS, INC.-2014-2316

PATIENT
  Sex: Female

DRUGS (3)
  1. DYSPORT [Suspect]
     Indication: SKIN WRINKLING
     Dosage: NOT REPORTED
     Route: 030
  2. DYSPORT [Suspect]
     Indication: SKIN WRINKLING
  3. DYSPORT [Suspect]
     Indication: OFF LABEL USE

REACTIONS (2)
  - Hallucination [Unknown]
  - Visual impairment [Unknown]
